FAERS Safety Report 19206078 (Version 1)
Quarter: 2021Q2

REPORT INFORMATION
  Report Type: Spontaneous
  Country: US (occurrence: US)
  Receive Date: 20210503
  Receipt Date: 20210503
  Transmission Date: 20210717
  Serious: Yes (Other)
  Sender: FDA-Public Use
  Company Number: None

PATIENT
  Age: 3 Year
  Sex: Female

DRUGS (1)
  1. CLONIDINE. [Suspect]
     Active Substance: CLONIDINE
     Route: 048
     Dates: start: 20210325, end: 20210326

REACTIONS (3)
  - Incorrect dose administered [None]
  - Emergency care [None]
  - Product dispensing error [None]

NARRATIVE: CASE EVENT DATE: 20210326
